FAERS Safety Report 23059629 (Version 2)
Quarter: 2023Q4

REPORT INFORMATION
  Report Type: Report from Study
  Country: FR (occurrence: FR)
  Receive Date: 20231012
  Receipt Date: 20231107
  Transmission Date: 20240110
  Serious: Yes (Hospitalization)
  Sender: FDA-Public Use
  Company Number: FR-Eisai Medical Research-EC-2023-147547

PATIENT
  Age: 38 Year
  Sex: Male
  Weight: 77.0 kg

DRUGS (11)
  1. LENVATINIB [Suspect]
     Active Substance: LENVATINIB
     Indication: Clear cell renal cell carcinoma
     Dosage: STARTING DOSE: 20 MG, FLUCTUATED DOSE
     Route: 048
     Dates: start: 20220629, end: 20230731
  2. LENVATINIB [Suspect]
     Active Substance: LENVATINIB
     Route: 048
     Dates: start: 20230801, end: 20230820
  3. QUAVONLIMAB [Suspect]
     Active Substance: QUAVONLIMAB
     Indication: Clear cell renal cell carcinoma
     Dosage: QUAVONLIMAB 25 MG (+) PEMBROLIZUMAB 400 MG
     Route: 042
     Dates: start: 20220629, end: 20230710
  4. PEMBROLIZUMAB [Suspect]
     Active Substance: PEMBROLIZUMAB
     Dosage: QUAVONLIMAB 25 MG (+) PEMBROLIZUMAB 400 MG
     Route: 042
     Dates: start: 20230911, end: 20230911
  5. PHLOROGLUCINOL [Concomitant]
     Active Substance: PHLOROGLUCINOL
     Dates: start: 20221230
  6. ACETAMINOPHEN [Concomitant]
     Active Substance: ACETAMINOPHEN
     Dates: start: 20230121
  7. ERYTHROMYCIN [Concomitant]
     Active Substance: ERYTHROMYCIN
     Dates: start: 20230710
  8. GLYCEROL/VASELINE/PARAFFINE BIOGARAN [Concomitant]
     Dates: start: 20230512
  9. METOCLOPRAMIDE [Concomitant]
     Active Substance: METOCLOPRAMIDE
     Dates: start: 20230513
  10. MONTMORILLONITE [Concomitant]
     Active Substance: MONTMORILLONITE
     Dates: start: 20230513
  11. LOPERAMIDE [Concomitant]
     Active Substance: LOPERAMIDE
     Dates: start: 20230513

REACTIONS (1)
  - Ventricular dyskinesia [Recovered/Resolved]

NARRATIVE: CASE EVENT DATE: 20230821
